FAERS Safety Report 6009130-4 (Version None)
Quarter: 2008Q4

REPORT INFORMATION
  Report Type: 
  Country: None (occurrence: None)
  Receive Date: 20081216
  Receipt Date: 20081204
  Transmission Date: 20090506
  Serious: Yes (Hospitalization)
  Sender: FDA-Public Use
  Company Number: 2008-187925-NL

PATIENT
  Age: 79 Year
  Sex: Male

DRUGS (10)
  1. MIRTAZAPINE [Suspect]
     Indication: DEPRESSION
     Dosage: 30 MG QD
     Route: 048
     Dates: start: 20070301, end: 20070701
  2. MIRTAZAPINE [Suspect]
     Indication: DISEASE RECURRENCE
     Dosage: 30 MG QD
     Route: 048
     Dates: start: 20070301, end: 20070701
  3. VENLAFAXINE HYDROCHLORIDE [Suspect]
     Indication: DEPRESSION
     Dosage: 75 MG QD
     Route: 048
     Dates: start: 20070607, end: 20070701
  4. VENLAFAXINE HYDROCHLORIDE [Suspect]
     Indication: DISEASE RECURRENCE
     Dosage: 75 MG QD
     Route: 048
     Dates: start: 20070607, end: 20070701
  5. RISPERIDONE [Suspect]
     Indication: PSYCHOTIC DISORDER
     Dosage: 0.5 MG BID
     Route: 048
     Dates: start: 20070506, end: 20070701
  6. SODIUM PICOSULFATE [Suspect]
     Dosage: 15 GTT QD
     Dates: end: 20070701
  7. LISINOPRIL [Suspect]
     Dosage: 10 MG QD
     Route: 048
  8. ASPIRIN [Concomitant]
  9. TIOTROPIUM BROMIDE [Concomitant]
  10. FLUTICASONE PROPIONATE [Concomitant]

REACTIONS (10)
  - ANTIDIURETIC HORMONE ABNORMALITY [None]
  - CONDITION AGGRAVATED [None]
  - CYSTITIS ESCHERICHIA [None]
  - GENERAL PHYSICAL HEALTH DETERIORATION [None]
  - HYPONATRAEMIA [None]
  - INAPPROPRIATE ANTIDIURETIC HORMONE SECRETION [None]
  - INFLAMMATION [None]
  - PARKINSONISM [None]
  - RENAL FAILURE CHRONIC [None]
  - UROSEPSIS [None]
